FAERS Safety Report 7424182-2 (Version None)
Quarter: 2011Q2

REPORT INFORMATION
  Report Type: 
  Country: None (occurrence: None)
  Receive Date: 20110419
  Receipt Date: 20110413
  Transmission Date: 20111010
  Serious: Yes (Other)
  Sender: FDA-Public Use
  Company Number: GB-MERCK-1104GBR00073

PATIENT
  Age: 47 Year
  Sex: Male
  Weight: 73 kg

DRUGS (2)
  1. ISENTRESS [Suspect]
     Indication: HIV INFECTION
     Route: 048
     Dates: start: 20110218, end: 20110328
  2. EMTRICITABINE AND TENOFOVIR DISOPROXIL FUMARATE [Concomitant]
     Indication: HIV INFECTION
     Route: 048
     Dates: start: 20090218

REACTIONS (5)
  - MYALGIA [None]
  - ARTHRALGIA [None]
  - ABNORMAL DREAMS [None]
  - DEPRESSION [None]
  - INSOMNIA [None]
